FAERS Safety Report 16420080 (Version 3)
Quarter: 2020Q1

REPORT INFORMATION
  Report Type: Report from Study
  Country: NO (occurrence: NO)
  Receive Date: 20190612
  Receipt Date: 20200302
  Transmission Date: 20200409
  Serious: Yes (Hospitalization)
  Sender: FDA-Public Use
  Company Number: NO-ROCHE-2276693

PATIENT
  Age: 56 Year
  Sex: Female
  Weight: 62.2 kg

DRUGS (11)
  1. SOBRIL [Concomitant]
     Active Substance: OXAZEPAM
     Route: 048
     Dates: start: 20181228
  2. OXYNORM [Concomitant]
     Active Substance: OXYCODONE HYDROCHLORIDE
     Indication: PAIN
     Route: 048
     Dates: start: 20190219, end: 20190219
  3. NOBLIGAN [Concomitant]
     Active Substance: TRAMADOL HYDROCHLORIDE
     Indication: PAIN
     Route: 048
     Dates: start: 20190219
  4. PARACET [PARACETAMOL] [Concomitant]
     Indication: PAIN
     Route: 048
     Dates: start: 20190219, end: 20190219
  5. SELOZOK [Concomitant]
     Active Substance: METOPROLOL SUCCINATE
     Indication: TACHYCARDIA
     Route: 048
     Dates: start: 201805
  6. ZOFRAN [Concomitant]
     Active Substance: ONDANSETRON HYDROCHLORIDE
     Indication: NAUSEA
     Route: 048
     Dates: start: 20190129
  7. IMODIUM [Concomitant]
     Active Substance: LOPERAMIDE HYDROCHLORIDE
     Indication: COLECTOMY
     Route: 048
     Dates: start: 201805
  8. DEXAMETASON [DEXAMETHASONE] [Concomitant]
     Active Substance: DEXAMETHASONE
  9. VENETOCLAX. [Suspect]
     Active Substance: VENETOCLAX
     Indication: PLASMA CELL MYELOMA
     Dosage: DATE OF MOST RECENT DOSE OF VENETOCLAX PRIOR TO SAE ONSET 28 FEB 2019 (800 MG)?ON DAYS 1-28 OF EACH
     Route: 048
     Dates: start: 20190122
  10. COBIMETINIB. [Suspect]
     Active Substance: COBIMETINIB
     Indication: PLASMA CELL MYELOMA
     Dosage: DATE OF MOST RECENT DOSE OF COBIMETINIB PRIOR TO SAE ONSET 28 FEB 2019 (40 MG)?DATE OF MOST RECENT D
     Route: 048
     Dates: start: 20190122
  11. ATEZOLIZUMAB. [Suspect]
     Active Substance: ATEZOLIZUMAB
     Indication: PLASMA CELL MYELOMA
     Dosage: DOSE OF LAST ATEZOLIZUMAB ADMINISTERED PRIOR TO SAE ONSET (19/FEB/2019) 840 MG?ON DAY 1 AND DAY 15 O
     Route: 042
     Dates: start: 20190122

REACTIONS (1)
  - Pneumonia [Recovered/Resolved]

NARRATIVE: CASE EVENT DATE: 20190301
